FAERS Safety Report 5700068-6 (Version None)
Quarter: 2008Q2

REPORT INFORMATION
  Report Type: 
  Country: None (occurrence: None)
  Receive Date: 20080410
  Receipt Date: 20080325
  Transmission Date: 20081010
  Serious: Yes (Death)
  Sender: FDA-Public Use
  Company Number: DK-ROCHE-555094

PATIENT
  Sex: Female
  Weight: 57 kg

DRUGS (9)
  1. PEGASYS [Suspect]
     Indication: HEPATITIS C
     Route: 058
     Dates: start: 20070925, end: 20071010
  2. COPEGUS [Suspect]
     Indication: HEPATITIS C
     Route: 048
     Dates: start: 20070925, end: 20071010
  3. FURIX [Concomitant]
     Indication: ASCITES
     Route: 048
  4. SPIRIX [Concomitant]
     Indication: ASCITES
     Route: 048
  5. METADON [Concomitant]
     Route: 048
  6. METADON [Concomitant]
     Dosage: REPORTED AS METHADONE/METADON ^DAK^.
     Route: 048
  7. APOVIT [Concomitant]
     Indication: ALCOHOLISM
     Route: 048
  8. APOVIT [Concomitant]
     Route: 048
  9. VITAMIN B1 [Concomitant]
     Indication: ALCOHOLISM
     Route: 048

REACTIONS (3)
  - ASCITES [None]
  - HEPATIC FAILURE [None]
  - JAUNDICE [None]
